FAERS Safety Report 16681697 (Version 1)
Quarter: 2019Q3

REPORT INFORMATION
  Report Type: Spontaneous
  Country: US (occurrence: US)
  Receive Date: 20190808
  Receipt Date: 20190808
  Transmission Date: 20191004
  Serious: Yes (Other)
  Sender: FDA-Public Use
  Company Number: US-LUPIN PHARMACEUTICALS INC.-2019-05037

PATIENT
  Age: 53 Year
  Sex: Male

DRUGS (2)
  1. NIACIN. [Suspect]
     Active Substance: NIACIN
     Dosage: 1.5 GRAM, QD (2 DIVIDED DOSES)
     Route: 065
  2. NIACIN. [Suspect]
     Active Substance: NIACIN
     Indication: HYPERLIPIDAEMIA
     Dosage: 1 GRAM, QD (2 DIVIDED DOSES)
     Route: 065

REACTIONS (1)
  - Maculopathy [Recovering/Resolving]
